FAERS Safety Report 11939574 (Version 5)
Quarter: 2016Q1

REPORT INFORMATION
  Report Type: Spontaneous
  Country: US (occurrence: US)
  Receive Date: 20160122
  Receipt Date: 20160325
  Transmission Date: 20160526
  Serious: Yes (Death, Other)
  Sender: FDA-Public Use
  Company Number: US-PFIZER INC-2016009659

PATIENT
  Age: 74 Year
  Sex: Female
  Weight: 38 kg

DRUGS (7)
  1. NITROFURANTOIN. [Concomitant]
     Active Substance: NITROFURANTOIN
     Dosage: UNK
  2. SUTENT [Suspect]
     Active Substance: SUNITINIB MALATE
     Indication: GASTROINTESTINAL STROMAL CANCER
     Dosage: 37.5 MG, DAILY
     Dates: start: 20160104, end: 20160301
  3. LASIX [Concomitant]
     Active Substance: FUROSEMIDE
     Dosage: UNK
  4. HYDROCODONE [Concomitant]
     Active Substance: HYDROCODONE
     Dosage: UNK
  5. CALCI-MIX [Concomitant]
     Dosage: UNK
  6. ALDACTONE [Concomitant]
     Active Substance: SPIRONOLACTONE
     Dosage: UNK
  7. PEPCID [Concomitant]
     Active Substance: FAMOTIDINE
     Dosage: UNK

REACTIONS (16)
  - Death [Fatal]
  - Dehydration [Unknown]
  - Decreased appetite [Recovering/Resolving]
  - Hiccups [Unknown]
  - Oesophageal disorder [Unknown]
  - Weight decreased [Not Recovered/Not Resolved]
  - Haematemesis [Unknown]
  - Oropharyngeal pain [Unknown]
  - Vomiting [Recovering/Resolving]
  - Pain in extremity [Unknown]
  - Feeling cold [Unknown]
  - Constipation [Unknown]
  - Somnolence [Unknown]
  - Pharyngeal disorder [Unknown]
  - Fatigue [Unknown]
  - Malaise [Unknown]

NARRATIVE: CASE EVENT DATE: 20160305
